FAERS Safety Report 11897895 (Version 2)
Quarter: 2016Q1

REPORT INFORMATION
  Report Type: Spontaneous
  Country: US (occurrence: US)
  Receive Date: 20160108
  Receipt Date: 20160118
  Transmission Date: 20160526
  Serious: Yes (Congenital Anomaly, Other)
  Sender: FDA-Public Use
  Company Number: US-CIPLA LTD.-2016US00080

PATIENT

DRUGS (4)
  1. TERBUTALINE [Suspect]
     Active Substance: TERBUTALINE
     Route: 064
  2. MAGNESIUM SULFATE. [Suspect]
     Active Substance: MAGNESIUM SULFATE
     Route: 064
  3. METHYLPREDNISOLONE. [Suspect]
     Active Substance: METHYLPREDNISOLONE
     Route: 064
  4. IPRATROPIUM BROMIDE/ALBUTEROL SULFATE [Suspect]
     Active Substance: ALBUTEROL SULFATE\IPRATROPIUM BROMIDE
     Route: 064

REACTIONS (2)
  - Foetal exposure during pregnancy [Unknown]
  - Cerebral ventricle dilatation [Unknown]
